FAERS Safety Report 9931322 (Version 2)
Quarter: 2014Q1

REPORT INFORMATION
  Report Type: Spontaneous
  Country: US (occurrence: US)
  Receive Date: 20140228
  Receipt Date: 20140326
  Transmission Date: 20141002
  Serious: Yes (Other)
  Sender: FDA-Public Use
  Company Number: US-AMGEN-USASP2014012798

PATIENT
  Age: 75 Year
  Sex: Female
  Weight: 56.15 kg

DRUGS (8)
  1. PROLIA [Suspect]
     Indication: OSTEOPOROSIS POSTMENOPAUSAL
     Dosage: 60 MG, Q6MO
     Route: 058
     Dates: start: 20140211
  2. LISINOPRIL [Concomitant]
     Dosage: 20 MG, QD
  3. LOPERAMIDE HCL [Concomitant]
     Dosage: 2 MG, UNK
  4. SIMVASTATIN [Concomitant]
     Dosage: 10 MG, UNK
  5. TOPROL [Concomitant]
     Dosage: 50 MG, QD
  6. TRAMADOL HCL [Concomitant]
     Dosage: 50 MG, QD
  7. COUMADIN                           /00014802/ [Concomitant]
     Dosage: 4 MG, UNK
  8. VITAMIN D                          /00107901/ [Concomitant]
     Dosage: 400 IU, UNK

REACTIONS (1)
  - Blood pressure diastolic decreased [Recovering/Resolving]
